FAERS Safety Report 19263904 (Version 1)
Quarter: 2021Q2

REPORT INFORMATION
  Report Type: Spontaneous
  Country: US (occurrence: US)
  Receive Date: 20210517
  Receipt Date: 20210517
  Transmission Date: 20210717
  Serious: No
  Sender: FDA-Public Use
  Company Number: US-BAUSCH-BL-2021-013571

PATIENT
  Age: 58 Year
  Sex: Female
  Weight: 51.3 kg

DRUGS (3)
  1. LUMIFY [Suspect]
     Active Substance: BRIMONIDINE TARTRATE
     Indication: OCULAR HYPERAEMIA
     Dosage: ONE DROP IN EACH EYE AS NEEDED A FEW YEARS AGO. GENERALLY USES THE PRODUCT ONCE DAILY
     Route: 047
     Dates: end: 2021
  2. LUMIFY [Suspect]
     Active Substance: BRIMONIDINE TARTRATE
     Dosage: 1 GTT IN EACH EYE AS NEEDED A FEW YEARS AGO. GENERALLY USES ONCE DAILY. PURCHASED 3 MONTHS AGO
     Route: 047
     Dates: start: 2021
  3. ESTROGEN NOS;PROGESTERONE [Concomitant]
     Active Substance: ESTROGENS\PROGESTERONE
     Indication: PRODUCT USED FOR UNKNOWN INDICATION
     Dosage: AS DIRECTED
     Route: 048

REACTIONS (4)
  - Ocular hyperaemia [Unknown]
  - Expired product administered [Unknown]
  - Condition aggravated [Unknown]
  - Therapeutic product effect incomplete [Unknown]

NARRATIVE: CASE EVENT DATE: 2021
